FAERS Safety Report 9115979 (Version 1)
Quarter: 2013Q1

REPORT INFORMATION
  Report Type: Spontaneous
  Country: FR (occurrence: FR)
  Receive Date: 20130225
  Receipt Date: 20130225
  Transmission Date: 20140127
  Serious: Yes (Other)
  Sender: FDA-Public Use
  Company Number: FR-ELI_LILLY_AND_COMPANY-FR201302004598

PATIENT
  Age: 85 Year
  Sex: Male

DRUGS (7)
  1. PROZAC [Suspect]
     Indication: DEPRESSION
     Dosage: 20 MG, QD
     Route: 048
     Dates: start: 20120427, end: 20120516
  2. DITROPAN [Concomitant]
     Dosage: UNK
  3. ALTEIS [Concomitant]
     Dosage: 40 MG, QD
  4. IXPRIM [Concomitant]
     Dosage: 3 DF, QD
  5. DOLIPRANE [Concomitant]
     Dosage: 3 G, QD
  6. CHRONO-INDOCID [Concomitant]
     Dosage: 75 MG, TID
  7. MODOPAR [Concomitant]
     Indication: EXTRAPYRAMIDAL DISORDER
     Dosage: 125 MG, TID
     Dates: start: 201204, end: 20120516

REACTIONS (6)
  - Serotonin syndrome [Recovered/Resolved]
  - Hypertension [Recovered/Resolved]
  - Muscle rigidity [Recovered/Resolved]
  - Tremor [Recovered/Resolved]
  - Myoclonus [Recovered/Resolved]
  - Agitation [Unknown]
